FAERS Safety Report 12490889 (Version 2)
Quarter: 2017Q3

REPORT INFORMATION
  Report Type: Report from Study
  Country: DE (occurrence: DE)
  Receive Date: 20160623
  Receipt Date: 20170727
  Transmission Date: 20171127
  Serious: Yes (Other)
  Sender: FDA-Public Use
  Company Number: DE-CIPLA LTD.-2016DE07379

PATIENT

DRUGS (3)
  1. LORAZEPAM. [Suspect]
     Active Substance: LORAZEPAM
     Indication: PSYCHOTHERAPY
     Dosage: UNK, MAXIMUM DOSE 7.5 MG/DAY
     Route: 065
  2. OLANZAPINE. [Suspect]
     Active Substance: OLANZAPINE
     Indication: SCHIZOPHRENIA
     Dosage: TWO TO FOUR TABLETS OF 5 MG (MAXIMUM DOSE 20 MG), QD
     Route: 048
  3. BIPERIDEN [Suspect]
     Active Substance: BIPERIDEN
     Indication: PSYCHOTHERAPY
     Dosage: UNK, MAXIMUM DOSE 8 MG/DAY
     Route: 065

REACTIONS (1)
  - Eye disorder [Unknown]
